FAERS Safety Report 7938647-8 (Version None)
Quarter: 2011Q4

REPORT INFORMATION
  Report Type: 
  Country: None (occurrence: None)
  Receive Date: 20111123
  Receipt Date: 20111118
  Transmission Date: 20120403
  Serious: Yes (Other)
  Sender: FDA-Public Use
  Company Number: US-MERCK-1111USA00960

PATIENT
  Age: 51 Year
  Sex: Female

DRUGS (1)
  1. ZOCOR [Suspect]
     Indication: HYPERLIPIDAEMIA
     Route: 048
     Dates: start: 19980101

REACTIONS (5)
  - BLINDNESS [None]
  - DRUG HYPERSENSITIVITY [None]
  - URTICARIA [None]
  - PALPITATIONS [None]
  - VISUAL IMPAIRMENT [None]
